FAERS Safety Report 14466510 (Version 1)
Quarter: 2018Q1

REPORT INFORMATION
  Report Type: Spontaneous
  Country: US (occurrence: US)
  Receive Date: 20180130
  Receipt Date: 20180130
  Transmission Date: 20180509
  Serious: Yes (Hospitalization)
  Sender: FDA-Public Use
  Company Number: None

PATIENT
  Age: 56 Year
  Sex: Female

DRUGS (21)
  1. DEXILANT [Concomitant]
     Active Substance: DEXLANSOPRAZOLE
  2. FUROSEMIDE. [Concomitant]
     Active Substance: FUROSEMIDE
  3. ITRACONAZOLE. [Concomitant]
     Active Substance: ITRACONAZOLE
  4. PLAVIX [Concomitant]
     Active Substance: CLOPIDOGREL BISULFATE
  5. FOLIC ACID. [Concomitant]
     Active Substance: FOLIC ACID
  6. LEVOXYL [Concomitant]
     Active Substance: LEVOTHYROXINE SODIUM
  7. PREDNISONE. [Concomitant]
     Active Substance: PREDNISONE
  8. SOD BICARB [Concomitant]
  9. PREMARIN [Concomitant]
     Active Substance: ESTROGENS, CONJUGATED
  10. ASPIRIN. [Concomitant]
     Active Substance: ASPIRIN
  11. COUMADIN [Concomitant]
     Active Substance: WARFARIN SODIUM
  12. VITAMIN D [Concomitant]
     Active Substance: CHOLECALCIFEROL
  13. IMURAN [Concomitant]
     Active Substance: AZATHIOPRINE
  14. TACROLIMUS  0.5MG [Suspect]
     Active Substance: TACROLIMUS
     Indication: TRANSPLANT
     Route: 048
     Dates: start: 2010
  15. METOPROLOL. [Concomitant]
     Active Substance: METOPROLOL
  16. PROGRAF [Concomitant]
     Active Substance: TACROLIMUS\TACROLIMUS ANHYDROUS
  17. BRILINTA [Concomitant]
     Active Substance: TICAGRELOR
  18. SULFAMETHAZ [Concomitant]
  19. ELIQUIS [Concomitant]
     Active Substance: APIXABAN
  20. DRONABINOL. [Concomitant]
     Active Substance: DRONABINOL
  21. FORTEO [Suspect]
     Active Substance: TERIPARATIDE
     Dosage: ROUTE - INJECTION
     Dates: start: 201605

REACTIONS (1)
  - Dehydration [None]

NARRATIVE: CASE EVENT DATE: 20180101
